FAERS Safety Report 9177358 (Version 1)
Quarter: 2013Q1

REPORT INFORMATION
  Report Type: Spontaneous
  Country: US (occurrence: None)
  Receive Date: 20130320
  Receipt Date: 20130320
  Transmission Date: 20140127
  Serious: Yes (Hospitalization)
  Sender: FDA-Public Use
  Company Number: None

PATIENT
  Age: 72 Year
  Sex: Male
  Weight: 85.8 kg

DRUGS (2)
  1. EVEROLIMUS [Suspect]
     Indication: DIFFUSE LARGE B-CELL LYMPHOMA
     Dosage: DAYS 1-28
     Dates: start: 20130225, end: 20130313
  2. LENALIDOMIDE [Suspect]
     Indication: DIFFUSE LARGE B-CELL LYMPHOMA
     Dosage: DAYS 1-21
     Dates: start: 20130225, end: 20130313

REACTIONS (5)
  - Febrile neutropenia [None]
  - Somnolence [None]
  - Cough [None]
  - Sepsis [None]
  - White blood cell count decreased [None]
